FAERS Safety Report 10273998 (Version 1)
Quarter: 2014Q2

REPORT INFORMATION
  Report Type: Spontaneous
  Country: US (occurrence: None)
  Receive Date: 20140630
  Receipt Date: 20140630
  Transmission Date: 20141212
  Serious: Yes (Death)
  Sender: FDA-Public Use
  Company Number: None

PATIENT
  Age: 12 Year
  Sex: Female

DRUGS (1)
  1. TOBRAMYCIN [Suspect]
     Indication: CYSTIC FIBROSIS
     Dosage: NEBULIZER

REACTIONS (1)
  - Death [None]
